FAERS Safety Report 6850577 (Version 4)
Quarter: 2014Q1

REPORT INFORMATION
  Report Type: Spontaneous
  Country: JP (occurrence: JP)
  Receive Date: 20081215
  Receipt Date: 20140317
  Transmission Date: 20141002
  Serious: Yes (Death, Other)
  Sender: FDA-Public Use
  Company Number: PHHY2008JP31675

PATIENT
  Age: 80 Year
  Sex: Male

DRUGS (2)
  1. SANDOSTATIN [Suspect]
     Indication: GASTROINTESTINAL OBSTRUCTION
     Route: 058
  2. SCOPOLAMINE BUTYLBROMIDE [Suspect]
     Indication: GASTROINTESTINAL OBSTRUCTION
     Route: 058

REACTIONS (7)
  - Multi-organ failure [Fatal]
  - Gastric fistula [Not Recovered/Not Resolved]
  - Pneumonia aspiration [Unknown]
  - Pyrexia [Unknown]
  - Dry mouth [Not Recovered/Not Resolved]
  - Intestinal obstruction [Unknown]
  - Thirst [Unknown]
